FAERS Safety Report 10038952 (Version 2)
Quarter: 2014Q2

REPORT INFORMATION
  Report Type: Spontaneous
  Country: US (occurrence: US)
  Receive Date: 20140326
  Receipt Date: 20140430
  Transmission Date: 20141212
  Serious: No
  Sender: FDA-Public Use
  Company Number: US-GILEAD-2014-0097368

PATIENT
  Sex: Female

DRUGS (3)
  1. LETAIRIS [Suspect]
     Indication: PRODUCT USED FOR UNKNOWN INDICATION
     Dosage: 10 MG, QD
     Route: 065
     Dates: start: 20130213
  2. REVATIO [Concomitant]
  3. SILDENAFIL [Concomitant]

REACTIONS (3)
  - Fatigue [Unknown]
  - Dyspnoea [Unknown]
  - Dizziness [Unknown]
